FAERS Safety Report 24879559 (Version 1)
Quarter: 2025Q1

REPORT INFORMATION
  Report Type: Spontaneous
  Country: CA (occurrence: CA)
  Receive Date: 20250123
  Receipt Date: 20250123
  Transmission Date: 20250409
  Serious: Yes (Other)
  Sender: BAYER HEALTHCARE LLC
  Company Number: CA-BAYER-2025A010680

PATIENT
  Sex: Male

DRUGS (1)
  1. NAPROXEN SODIUM [Suspect]
     Active Substance: NAPROXEN SODIUM
     Indication: Product used for unknown indication
     Route: 065

REACTIONS (5)
  - Pruritus [Unknown]
  - Melaena [Unknown]
  - Rash [Unknown]
  - Urticaria [Unknown]
  - Swelling [Unknown]
